FAERS Safety Report 15272694 (Version 1)
Quarter: 2018Q3

REPORT INFORMATION
  Report Type: Spontaneous
  Country: US (occurrence: US)
  Receive Date: 20180727
  Receipt Date: 20180727
  Transmission Date: 20181010
  Serious: Yes (Hospitalization)
  Sender: FDA-Public Use
  Company Number: None

PATIENT
  Age: 79 Year
  Sex: Female
  Weight: 52.16 kg

DRUGS (5)
  1. NOVOLOG [Concomitant]
     Active Substance: INSULIN ASPART
  2. GLARGINE INSULIN [Concomitant]
     Active Substance: INSULIN GLARGINE
  3. ZETIA [Concomitant]
     Active Substance: EZETIMIBE
  4. INSULIN PEN [Concomitant]
     Active Substance: INSULIN NOS
  5. VALSARTAN TAB [Suspect]
     Active Substance: VALSARTAN
     Indication: HYPERTENSION
     Dosage: ?          QUANTITY:1 DF DOSAGE FORM;?
     Route: 048
     Dates: start: 20180516, end: 20180616

REACTIONS (3)
  - Swollen tongue [None]
  - Mouth swelling [None]
  - Lip swelling [None]

NARRATIVE: CASE EVENT DATE: 20180706
